FAERS Safety Report 12788849 (Version 1)
Quarter: 2016Q3

REPORT INFORMATION
  Report Type: Not Available
  Country: IE (occurrence: IE)
  Receive Date: 20160928
  Receipt Date: 20160928
  Transmission Date: 20161109
  Serious: Yes (Other)
  Sender: FDA-Public Use
  Company Number: IE-PURDUE PHARMA-GBR-2016-0040680

PATIENT
  Age: 81 Year
  Sex: Female

DRUGS (3)
  1. UNIPHYLLIN CONTINUS TABLETS [Suspect]
     Active Substance: THEOPHYLLINE ANHYDROUS
     Indication: PULMONARY HYPERTENSION
     Dosage: 200 MG, DAILY
     Route: 048
     Dates: start: 20160822, end: 20160905
  2. APIXABAN [Concomitant]
     Active Substance: APIXABAN
  3. FLUTICASONE FUROATE [Suspect]
     Active Substance: FLUTICASONE FUROATE
     Indication: PULMONARY HYPERTENSION
     Dosage: 1 PUFF, DAILY
     Route: 055
     Dates: start: 20160822, end: 20160905

REACTIONS (2)
  - Fall [Recovered/Resolved]
  - Arrhythmia [Recovered/Resolved]

NARRATIVE: CASE EVENT DATE: 20160830
